FAERS Safety Report 9564215 (Version 1)
Quarter: 2013Q3

REPORT INFORMATION
  Report Type: Spontaneous
  Country: FR (occurrence: FR)
  Receive Date: 20130930
  Receipt Date: 20130930
  Transmission Date: 20140515
  Serious: Yes (Hospitalization)
  Sender: FDA-Public Use
  Company Number: FR-ROCHE-1277848

PATIENT
  Age: 78 Year
  Sex: Female

DRUGS (18)
  1. MABTHERA [Suspect]
     Indication: B-CELL LYMPHOMA
     Route: 051
     Dates: start: 2009, end: 201205
  2. MABTHERA [Suspect]
     Route: 051
     Dates: start: 20130724
  3. ENDOXAN [Suspect]
     Indication: B-CELL LYMPHOMA
     Route: 042
     Dates: start: 2007, end: 2008
  4. DOXORUBICINE [Suspect]
     Indication: B-CELL LYMPHOMA
     Route: 051
     Dates: start: 2007, end: 2008
  5. INTERFERON ALFA-2A [Suspect]
     Indication: B-CELL LYMPHOMA
     Route: 058
     Dates: start: 2007
  6. ZEVALIN [Suspect]
     Indication: B-CELL LYMPHOMA
     Route: 042
     Dates: start: 200911, end: 200911
  7. LEVACT (FRANCE) [Suspect]
     Indication: B-CELL LYMPHOMA
     Route: 042
     Dates: start: 201109, end: 201205
  8. VINCRISTINE [Suspect]
     Indication: B-CELL LYMPHOMA
     Route: 051
     Dates: start: 2007, end: 2008
  9. PREDNISONE [Suspect]
     Indication: B-CELL LYMPHOMA
     Route: 065
     Dates: start: 2007, end: 2008
  10. BINOCRIT [Concomitant]
     Indication: ANAEMIA
  11. ARANESP [Concomitant]
     Route: 065
     Dates: start: 20130529
  12. LEDERFOLINE [Concomitant]
  13. TRAMADOL [Concomitant]
  14. LYRICA [Concomitant]
  15. BACTRIM [Concomitant]
     Route: 065
  16. RASILEZ [Concomitant]
  17. PANTOPRAZOLE [Concomitant]
  18. DOMPERIDONE [Concomitant]

REACTIONS (1)
  - Myelodysplastic syndrome [Not Recovered/Not Resolved]
